FAERS Safety Report 24365988 (Version 3)
Quarter: 2024Q4

REPORT INFORMATION
  Report Type: Spontaneous
  Country: FR (occurrence: FR)
  Receive Date: 20240926
  Receipt Date: 20241104
  Transmission Date: 20250115
  Serious: Yes (Hospitalization)
  Sender: SANDOZ
  Company Number: FR-AFSSAPS-NT2024001170

PATIENT
  Age: 11 Year
  Sex: Female
  Weight: 26.4 kg

DRUGS (41)
  1. AMLODIPINE [Suspect]
     Active Substance: AMLODIPINE BESYLATE
     Indication: Hypertension
     Dosage: 5 MG X 2/DAY
     Route: 048
  2. AMLODIPINE [Suspect]
     Active Substance: AMLODIPINE BESYLATE
     Indication: Hypertension
  3. BACTRIM [Suspect]
     Active Substance: SULFAMETHOXAZOLE\TRIMETHOPRIM
     Indication: Antibiotic prophylaxis
     Dosage: 1800 MG; 600 MG 3 FOIS PAR SEMAINE
     Route: 065
  4. BACTRIM [Suspect]
     Active Substance: SULFAMETHOXAZOLE\TRIMETHOPRIM
     Dosage: 600 MG 3 TIMES A WEEK
     Route: 065
  5. CYCLOSPORINE [Suspect]
     Active Substance: CYCLOSPORINE
     Indication: Prophylaxis against graft versus host disease
     Dosage: 170 MG, QD; 85 MG 2 FOIS PAR JOUR
     Route: 042
     Dates: start: 20240528
  6. CYCLOSPORINE [Suspect]
     Active Substance: CYCLOSPORINE
     Dosage: 85 MG 2 TIMES DAILY
     Route: 042
     Dates: start: 20240528
  7. CELLCEPT [Suspect]
     Active Substance: MYCOPHENOLATE MOFETIL
     Dosage: 30 MG/KG/DAY, DECREASING FROM 23/7, CELLCEPT 375 MG X 2/DAY
     Route: 042
     Dates: start: 20240528, end: 20240730
  8. CELLCEPT [Suspect]
     Active Substance: MYCOPHENOLATE MOFETIL
     Indication: Prophylaxis against graft versus host disease
     Dosage: 30 MG/KG/JOUR, D?CROISSANCE ? PARTIR DU 23/07
     Route: 042
     Dates: start: 20240528, end: 20240730
  9. CIDOFOVIR [Suspect]
     Active Substance: CIDOFOVIR
     Indication: Adenovirus infection
     Dosage: 1 MG/KG X3/SEMAINE (J1, J4, J7) ? PARTIR DU 21/06, 5 MG/KG LE 10/07, ARR?T, REPRISE LE 26/07 ? 1 MG/
     Route: 042
     Dates: start: 20240621
  10. CIDOFOVIR [Suspect]
     Active Substance: CIDOFOVIR
     Dosage: 1 MG/KG X3/WEEK (D1, D4, D7) FROM 21/06, 5 MG/KG ON 10/07, STOP, RESUME ON 26/07 AT 1 MG/KG.75 MG X
     Route: 042
     Dates: start: 20240621
  11. DOLIPRANE [Suspect]
     Active Substance: ACETAMINOPHEN
     Indication: Pain
     Dosage: 15 MG/KG X 4/DAY
     Route: 048
  12. DOLIPRANE [Suspect]
     Active Substance: ACETAMINOPHEN
     Dosage: UNK, NR
     Route: 048
  13. LANSOPRAZOLE [Suspect]
     Active Substance: LANSOPRAZOLE
     Dosage: 15 MG PO X 1/DAY
     Route: 048
  14. LANSOPRAZOLE [Suspect]
     Active Substance: LANSOPRAZOLE
     Indication: Gastric ulcer
     Dosage: 30 MG, QD; 15 MG 2 FOIS PAR JOUR
     Route: 048
  15. MICAFUNGIN [Suspect]
     Active Substance: MICAFUNGIN SODIUM
     Dosage: 200 MG, QW (100 MG 2 TIMES A WEEK)
     Route: 065
  16. MICAFUNGIN [Suspect]
     Active Substance: MICAFUNGIN SODIUM
     Indication: Antibiotic prophylaxis
     Dosage: 200 MG; 100 MG 2 FOIS PAR SEMAINE
     Route: 065
  17. URSODIOL [Suspect]
     Active Substance: URSODIOL
     Indication: Venoocclusive disease
     Dosage: 300 MG, QD
     Route: 048
     Dates: start: 20240705
  18. URSODIOL [Suspect]
     Active Substance: URSODIOL
     Indication: Venoocclusive disease
     Dosage: 300 MG, QD; 150 MG 2 FOIS PAR JOUR
     Route: 048
     Dates: end: 20240705
  19. ONDANSETRON [Suspect]
     Active Substance: ONDANSETRON
     Indication: Vomiting
     Dosage: UNK; NR
     Route: 042
  20. ONDANSETRON [Suspect]
     Active Substance: ONDANSETRON
     Indication: Vomiting
  21. ONDANSETRON [Suspect]
     Active Substance: ONDANSETRON
     Indication: Vomiting
  22. ACYCLOVIR [Concomitant]
     Active Substance: ACYCLOVIR
     Indication: Product used for unknown indication
     Dosage: 250 MILLIGRAM, BIDUNK
     Route: 065
  23. ACYCLOVIR [Concomitant]
     Active Substance: ACYCLOVIR
     Dosage: 250 MILLIGRAM, BIDUNK
     Route: 065
  24. ACYCLOVIR [Concomitant]
     Active Substance: ACYCLOVIR
     Indication: Product used for unknown indication
     Dosage: 250 MG X 2/DAY
     Route: 065
  25. ACUPAN [Concomitant]
     Active Substance: NEFOPAM HYDROCHLORIDE
     Indication: Product used for unknown indication
     Dosage: 7 MILLIGRAM, QIDUNK
     Route: 065
  26. ACUPAN [Concomitant]
     Active Substance: NEFOPAM HYDROCHLORIDE
     Dosage: 7 MILLIGRAM, QIDUNK
     Route: 065
  27. ACUPAN [Concomitant]
     Active Substance: NEFOPAM HYDROCHLORIDE
     Indication: Product used for unknown indication
     Dosage: 7 MG X 4/DAY
     Route: 065
  28. AMITRIPTYLINE [Concomitant]
     Active Substance: AMITRIPTYLINE
     Indication: Product used for unknown indication
     Dosage: 15 MILLIGRAMUNK
     Route: 065
  29. AMITRIPTYLINE [Concomitant]
     Active Substance: AMITRIPTYLINE
     Dosage: 15 MILLIGRAMUNK
     Route: 065
  30. AMITRIPTYLINE [Concomitant]
     Active Substance: AMITRIPTYLINE
     Indication: Product used for unknown indication
     Dosage: 15 MG OVER 8 HOURS AT NIGHT
     Route: 065
  31. CHLORPROMAZINE [Concomitant]
     Active Substance: CHLORPROMAZINE
     Indication: Product used for unknown indication
     Dosage: 7 MILLIGRAM, Q8HRUNK
     Route: 065
  32. CHLORPROMAZINE [Concomitant]
     Active Substance: CHLORPROMAZINE
     Dosage: 7 MILLIGRAM, Q8HRUNK
     Route: 065
  33. CHLORPROMAZINE [Concomitant]
     Active Substance: CHLORPROMAZINE
     Indication: Product used for unknown indication
     Dosage: 7 MG /8HUNK
     Route: 065
  34. NUBAIN [Concomitant]
     Active Substance: NALBUPHINE HYDROCHLORIDE
     Indication: Product used for unknown indication
     Dosage: UNK, QIDUNK
     Route: 065
  35. NUBAIN [Concomitant]
     Active Substance: NALBUPHINE HYDROCHLORIDE
     Dosage: UNK, QIDUNK
     Route: 065
  36. NUBAIN [Concomitant]
     Active Substance: NALBUPHINE HYDROCHLORIDE
     Indication: Product used for unknown indication
     Dosage: 0.2 MG/KG X 4/DAY
     Route: 065
  37. Spasfon [Concomitant]
     Indication: Product used for unknown indication
     Dosage: 40 MILLIGRAM, TIDUNK
     Route: 065
  38. Spasfon [Concomitant]
     Dosage: 40 MILLIGRAM, TIDUNK
     Route: 065
  39. Spasfon [Concomitant]
     Indication: Product used for unknown indication
     Dosage: 40 MG X 3/DAY
     Route: 065
  40. VITAMIN K [Concomitant]
     Active Substance: PHYTONADIONE
     Indication: Product used for unknown indication
     Dosage: 10 MG X 1/WEEK.UNK
     Route: 065
  41. VITAMIN K [Concomitant]
     Active Substance: PHYTONADIONE
     Indication: Product used for unknown indication

REACTIONS (2)
  - Pancreatitis acute [Recovered/Resolved]
  - Product use in unapproved indication [Recovered/Resolved]

NARRATIVE: CASE EVENT DATE: 20240710
